FAERS Safety Report 18104154 (Version 1)
Quarter: 2020Q3

REPORT INFORMATION
  Report Type: Spontaneous
  Country: US (occurrence: US)
  Receive Date: 20200803
  Receipt Date: 20200803
  Transmission Date: 20201103
  Serious: No
  Sender: FDA-Public Use
  Company Number: None

PATIENT
  Age: 32 Year
  Sex: Male
  Weight: 124.3 kg

DRUGS (16)
  1. HUMALOG [Concomitant]
     Active Substance: INSULIN LISPRO
     Dates: start: 20200721, end: 20200803
  2. FENOFIBRATE. [Concomitant]
     Active Substance: FENOFIBRATE
     Dates: start: 20200721, end: 20200803
  3. VANCOMYCIN [Concomitant]
     Active Substance: VANCOMYCIN
     Dates: start: 20200724, end: 20200726
  4. BENZONATATE. [Concomitant]
     Active Substance: BENZONATATE
     Dates: start: 20200726, end: 20200727
  5. TRAMADOL. [Concomitant]
     Active Substance: TRAMADOL
     Dates: start: 20200726, end: 20200727
  6. REMDESIVIR. [Suspect]
     Active Substance: REMDESIVIR
     Indication: COVID-19
     Route: 040
     Dates: start: 20200726, end: 20200729
  7. PANTOPRAZOLE [Concomitant]
     Active Substance: PANTOPRAZOLE
     Dates: start: 20200717, end: 20200731
  8. LANTUS [Concomitant]
     Active Substance: INSULIN GLARGINE
     Dates: start: 20200720, end: 20200803
  9. FISH OIL [Concomitant]
     Active Substance: FISH OIL
     Dates: start: 20200721, end: 20200803
  10. PRIMAXIN IV [Concomitant]
     Active Substance: CILASTATIN SODIUM\IMIPENEM
     Dates: start: 20200723, end: 20200725
  11. OFIRMEV [Concomitant]
     Active Substance: ACETAMINOPHEN
     Dates: start: 20200717, end: 20200727
  12. DOXYCYCLINE. [Concomitant]
     Active Substance: DOXYCYCLINE
     Dates: start: 20200726, end: 20200803
  13. LOVENOX [Concomitant]
     Active Substance: ENOXAPARIN SODIUM
     Dates: start: 20200729, end: 20200803
  14. DEXAMETHASONE IV [Concomitant]
     Active Substance: DEXAMETHASONE
     Dates: start: 20200727, end: 20200803
  15. IOPAMIDOL 76% INJECTION [Concomitant]
     Dates: start: 20200728, end: 20200728
  16. MEROPENEM. [Concomitant]
     Active Substance: MEROPENEM
     Dates: start: 20200725, end: 20200726

REACTIONS (1)
  - Liver function test increased [None]

NARRATIVE: CASE EVENT DATE: 20200730
